FAERS Safety Report 5694067-0 (Version None)
Quarter: 2008Q2

REPORT INFORMATION
  Report Type: 
  Country: None (occurrence: None)
  Receive Date: 20080401
  Receipt Date: 20080320
  Transmission Date: 20081010
  Serious: Yes (Hospitalization)
  Sender: FDA-Public Use
  Company Number: WAES 0802DNK00009

PATIENT
  Age: 69 Year
  Sex: Female

DRUGS (12)
  1. FOSAMAX [Suspect]
     Indication: OSTEOPOROSIS
     Dosage: PO
     Route: 048
     Dates: start: 20050208, end: 20050831
  2. DICLOFENAC DEANOL [Suspect]
     Dosage: PO
     Route: 048
     Dates: start: 20050301, end: 20050913
  3. BLINDED THERAPY [Suspect]
     Dosage: PO : PO
     Route: 048
     Dates: start: 20050812, end: 20050101
  4. BLINDED THERAPY [Suspect]
     Dosage: PO : PO
     Route: 048
     Dates: start: 20050101, end: 20050928
  5. MG OXIDE [Concomitant]
  6. ACETAMINOPHEN [Concomitant]
  7. ASPIRIN [Concomitant]
  8. CALCIUM (UNSPECIFIED) + VITAMIN D (UNS [Concomitant]
  9. PERINDOPRIL [Concomitant]
  10. SIMVASTATIN [Concomitant]
  11. TRAMADOL HCL [Concomitant]
  12. VALPROATE SODIUM [Concomitant]

REACTIONS (1)
  - DUODENAL ULCER PERFORATION [None]
